FAERS Safety Report 10639822 (Version 7)
Quarter: 2019Q4

REPORT INFORMATION
  Report Type: Spontaneous
  Country: CA (occurrence: CA)
  Receive Date: 20141209
  Receipt Date: 20191217
  Transmission Date: 20200122
  Serious: Yes (Hospitalization, Other)
  Sender: FDA-Public Use
  Company Number: CA-ROCHE-1505003

PATIENT
  Age: 25 Year
  Sex: Male

DRUGS (11)
  1. XOLAIR [Suspect]
     Active Substance: OMALIZUMAB
     Route: 058
     Dates: start: 20161104
  2. SPORANOX [Concomitant]
     Active Substance: ITRACONAZOLE
  3. TOBRAMYCIN. [Concomitant]
     Active Substance: TOBRAMYCIN
  4. XOLAIR [Suspect]
     Active Substance: OMALIZUMAB
     Route: 058
     Dates: start: 20170905
  5. XOLAIR [Suspect]
     Active Substance: OMALIZUMAB
     Route: 058
     Dates: start: 20191122
  6. ALVESCO [Concomitant]
     Active Substance: CICLESONIDE
  7. PREDNISONE. [Concomitant]
     Active Substance: PREDNISONE
  8. INSULIN [Concomitant]
     Active Substance: INSULIN NOS
  9. XOLAIR [Suspect]
     Active Substance: OMALIZUMAB
     Indication: ASTHMA
     Route: 058
     Dates: start: 20090326
  10. XOLAIR [Suspect]
     Active Substance: OMALIZUMAB
     Route: 058
     Dates: start: 20141218
  11. SYMBICORT [Concomitant]
     Active Substance: BUDESONIDE\FORMOTEROL FUMARATE DIHYDRATE

REACTIONS (10)
  - Heart rate increased [Unknown]
  - Pneumonia [Unknown]
  - Nasopharyngitis [Unknown]
  - Intercepted product dispensing error [Unknown]
  - Cough [Unknown]
  - Sputum discoloured [Unknown]
  - Appendicitis [Unknown]
  - Cystic fibrosis [Unknown]
  - Rhinorrhoea [Unknown]
  - Appendicitis perforated [Unknown]

NARRATIVE: CASE EVENT DATE: 20141203
